FAERS Safety Report 4341875-4 (Version None)
Quarter: 2004Q2

REPORT INFORMATION
  Report Type: 
  Country: None (occurrence: None)
  Receive Date: 20040415
  Receipt Date: 20030715
  Transmission Date: 20050107
  Serious: Yes (Other)
  Sender: FDA-Public Use
  Company Number: USA030741527

PATIENT
  Sex: Female

DRUGS (2)
  1. ZYPREXA [Suspect]
     Dosage: 5 MG
  2. DEPAKOTE [Concomitant]

REACTIONS (1)
  - BLINDNESS [None]
